FAERS Safety Report 9639203 (Version 1)
Quarter: 2013Q4

REPORT INFORMATION
  Report Type: Spontaneous
  Country: FR (occurrence: FR)
  Receive Date: 20131022
  Receipt Date: 20131022
  Transmission Date: 20140711
  Serious: Yes (Other)
  Sender: FDA-Public Use
  Company Number: FR-MYLANLABS-2013S1022653

PATIENT
  Age: 52 Year
  Sex: Male

DRUGS (3)
  1. BISOPROLOL [Suspect]
     Indication: ARRHYTHMIA
     Route: 048
     Dates: start: 20130516, end: 20130627
  2. FLECAINE [Suspect]
     Indication: ARRHYTHMIA
     Route: 048
     Dates: start: 20130516, end: 20130627
  3. PREVISCAN [Suspect]
     Indication: PRODUCT USED FOR UNKNOWN INDICATION
     Route: 048

REACTIONS (2)
  - Asthma [Not Recovered/Not Resolved]
  - Hypersomnia [Not Recovered/Not Resolved]
